FAERS Safety Report 8959235 (Version 1)
Quarter: 2012Q4

REPORT INFORMATION
  Report Type: 
  Country: US (occurrence: US)
  Receive Date: 20121212
  Receipt Date: 20121212
  Transmission Date: 20130627
  Serious: Yes (Hospitalization, Other)
  Sender: FDA-Public Use
  Company Number: US-ELI_LILLY_AND_COMPANY-US201212000352

PATIENT
  Age: 89 None
  Sex: Female

DRUGS (8)
  1. FORTEO [Suspect]
     Indication: OSTEOPOROSIS
     Dosage: 20 ug, qd
     Dates: start: 201202
  2. ASACOL [Concomitant]
  3. IMURAN [Concomitant]
  4. CALCIUM [Concomitant]
  5. VITAMIN D NOS [Concomitant]
  6. DIOVAN [Concomitant]
  7. PREDNISONE [Concomitant]
  8. ANTIBIOTICS [Concomitant]
     Indication: MICTURITION DISORDER
     Dosage: UNK
     Dates: start: 201203

REACTIONS (7)
  - Pulmonary embolism [Unknown]
  - Thrombosis [Unknown]
  - Oedema peripheral [Unknown]
  - Joint swelling [Unknown]
  - Micturition disorder [Unknown]
  - Colitis [Recovering/Resolving]
  - Dehydration [Unknown]
